FAERS Safety Report 8842358 (Version 4)
Quarter: 2013Q3

REPORT INFORMATION
  Report Type: Spontaneous
  Country: GB (occurrence: GB)
  Receive Date: 20121016
  Receipt Date: 20130715
  Transmission Date: 20140515
  Serious: Yes (Hospitalization, Other)
  Sender: FDA-Public Use
  Company Number: GB-BAYER-2012-104991

PATIENT
  Age: 68 Year
  Sex: Male

DRUGS (5)
  1. NEXAVAR [Suspect]
     Indication: HEPATOCELLULAR CARCINOMA
     Dosage: 400 MG, BID
     Dates: start: 20120713, end: 201207
  2. NEXAVAR [Suspect]
     Indication: HEPATOCELLULAR CARCINOMA
     Dosage: 400 MG, QD
     Dates: start: 20120810, end: 20120824
  3. RAMIPRIL [Concomitant]
  4. FRUSEMIDE [Concomitant]
     Dosage: 40 MG, QD
  5. BISOPROLOL [Concomitant]
     Dosage: 2.5 MG, BID

REACTIONS (14)
  - Adverse drug reaction [Recovered/Resolved]
  - Depressed level of consciousness [Recovered/Resolved]
  - Confusional state [Recovered/Resolved]
  - Blood pressure increased [Not Recovered/Not Resolved]
  - Coordination abnormal [Recovered/Resolved]
  - Aphasia [Recovered/Resolved]
  - Aphasia [Not Recovered/Not Resolved]
  - Encephalopathy [None]
  - Depressed level of consciousness [None]
  - Confusional state [Recovered/Resolved]
  - Vomiting [None]
  - Weight decreased [None]
  - Asthenia [None]
  - Liver function test abnormal [None]
